FAERS Safety Report 24958966 (Version 1)
Quarter: 2025Q1

REPORT INFORMATION
  Report Type: Spontaneous
  Country: DE (occurrence: DE)
  Receive Date: 20250212
  Receipt Date: 20250212
  Transmission Date: 20250409
  Serious: Yes (Other)
  Sender: ALKEM
  Company Number: DE-ALKEM LABORATORIES LIMITED-DE-ALKEM-2025-01447

PATIENT

DRUGS (3)
  1. SILDENAFIL [Suspect]
     Active Substance: SILDENAFIL
     Indication: Product used for unknown indication
     Route: 065
  2. IMATINIB MESYLATE [Suspect]
     Active Substance: IMATINIB MESYLATE
     Indication: Product used for unknown indication
     Route: 065
  3. INTERFERON ALFA NOS [Suspect]
     Active Substance: INTERFERON ALFA-2A OR INTERFERON ALFA-2B
     Indication: Product used for unknown indication
     Route: 065

REACTIONS (1)
  - Drug-induced liver injury [Unknown]
